FAERS Safety Report 9248132 (Version 1)
Quarter: 2013Q2

REPORT INFORMATION
  Report Type: Spontaneous
  Country: US (occurrence: US)
  Receive Date: 20130423
  Receipt Date: 20130423
  Transmission Date: 20140414
  Serious: Yes (Other)
  Sender: FDA-Public Use
  Company Number: US-PFIZER INC-2013119399

PATIENT
  Age: 27 Year
  Sex: Male

DRUGS (3)
  1. EPINEPHRINE [Suspect]
     Dosage: 2 CC OF 1: 1000 (2 MG)
     Route: 042
  2. VALIUM [Concomitant]
     Indication: AGITATION
     Dosage: 5 MG, UNK
  3. DEXTROSE [Concomitant]
     Dosage: 50 CC OF 50 % DEXTROSE

REACTIONS (14)
  - Wrong drug administered [Unknown]
  - Accidental overdose [Unknown]
  - Arteriospasm coronary [Not Recovered/Not Resolved]
  - Myocardial ischaemia [Unknown]
  - Chest pain [Recovered/Resolved]
  - Hypotension [Unknown]
  - Nausea [Recovered/Resolved]
  - Hyperhidrosis [Unknown]
  - Heart rate increased [Unknown]
  - Electrocardiogram ST segment elevation [Unknown]
  - Agitation [Unknown]
  - Hyperglycaemia [Unknown]
  - Hypokalaemia [Unknown]
  - Pallor [Unknown]
